FAERS Safety Report 22909068 (Version 2)
Quarter: 2023Q4

REPORT INFORMATION
  Report Type: Spontaneous
  Country: IN (occurrence: IN)
  Receive Date: 20230906
  Receipt Date: 20231011
  Transmission Date: 20240109
  Serious: Yes (Other)
  Sender: FDA-Public Use
  Company Number: IN-BoehringerIngelheim-2023-BI-259090

PATIENT
  Age: 33 Year
  Sex: Male

DRUGS (2)
  1. NINTEDANIB [Suspect]
     Active Substance: NINTEDANIB
     Indication: Prophylaxis
  2. Inj. Dexamethasone 8 mg [Concomitant]
     Indication: Product used for unknown indication

REACTIONS (2)
  - Osteonecrosis of jaw [Recovering/Resolving]
  - Intentional product use issue [Unknown]
